FAERS Safety Report 23821608 (Version 1)
Quarter: 2024Q2

REPORT INFORMATION
  Report Type: Spontaneous
  Country: ID (occurrence: ID)
  Receive Date: 20240506
  Receipt Date: 20240506
  Transmission Date: 20240716
  Serious: Yes (Hospitalization)
  Sender: FDA-Public Use
  Company Number: ID-BAYER-2024A059786

PATIENT
  Age: 11 Year

DRUGS (2)
  1. ULTRAVIST [Suspect]
     Active Substance: IOPROMIDE
     Indication: Deep vein thrombosis
     Dosage: UNK, ONCE
     Dates: start: 20240417, end: 20240417
  2. ULTRAVIST [Suspect]
     Active Substance: IOPROMIDE
     Indication: Gitelman^s syndrome

REACTIONS (7)
  - Loss of consciousness [Recovered/Resolved]
  - Shock [Recovered/Resolved]
  - Hypersensitivity [Recovered/Resolved]
  - Erythema [Recovered/Resolved]
  - Oxygen saturation decreased [Recovered/Resolved]
  - Mouth swelling [Recovered/Resolved]
  - Pulse abnormal [Recovered/Resolved]

NARRATIVE: CASE EVENT DATE: 20240417
